FAERS Safety Report 9074310 (Version 1)
Quarter: 2013Q1

REPORT INFORMATION
  Report Type: Report from Study
  Country: US (occurrence: US)
  Receive Date: 20130128
  Receipt Date: 20130128
  Transmission Date: 20140127
  Serious: No
  Sender: FDA-Public Use
  Company Number: US-ABBOTT-12P-163-0909867-00

PATIENT
  Age: 75 None
  Sex: Female
  Weight: 69.01 kg

DRUGS (10)
  1. HUMIRA 40 MG/0.8 ML PEN [Suspect]
     Indication: RHEUMATOID ARTHRITIS
     Dates: start: 2010, end: 20120210
  2. BAYER ASPIRIN [Concomitant]
     Indication: HEART VALVE REPLACEMENT
  3. BAYER ASPIRIN [Concomitant]
     Indication: HEART VALVE REPLACEMENT
  4. METOPROLOL [Concomitant]
     Indication: HYPERTENSION
  5. PREDNISONE [Concomitant]
     Indication: RHEUMATOID ARTHRITIS
  6. SIMVASTATIN [Concomitant]
     Indication: BLOOD CHOLESTEROL INCREASED
  7. LOSARTAN [Concomitant]
     Indication: HYPERTENSION
  8. POTASSIUM [Concomitant]
     Indication: HYPERTENSION
  9. POTASSIUM [Concomitant]
     Indication: DRUG THERAPY
  10. ACTONEL [Concomitant]
     Indication: OSTEOPOROSIS

REACTIONS (14)
  - Nasopharyngitis [Not Recovered/Not Resolved]
  - Oropharyngeal pain [Not Recovered/Not Resolved]
  - Sneezing [Not Recovered/Not Resolved]
  - Vomiting [Recovered/Resolved]
  - Pyrexia [Recovered/Resolved]
  - Vomiting [Recovered/Resolved]
  - Pyrexia [Recovered/Resolved]
  - Kidney infection [Recovered/Resolved]
  - Blood urine present [Recovered/Resolved]
  - Kidney infection [Recovered/Resolved]
  - Vomiting [Recovered/Resolved]
  - Pyrexia [Recovered/Resolved]
  - Blood urine present [Recovered/Resolved]
  - Kidney infection [Recovered/Resolved]
